FAERS Safety Report 6305814-9 (Version None)
Quarter: 2009Q3

REPORT INFORMATION
  Report Type: 
  Country: None (occurrence: None)
  Receive Date: 20090812
  Receipt Date: 20090803
  Transmission Date: 20100115
  Serious: Yes (Hospitalization, Other)
  Sender: FDA-Public Use
  Company Number: GB-RANBAXY-2008RR-17640

PATIENT
  Sex: Male
  Weight: 3.5 kg

DRUGS (7)
  1. AMOXICILLIN [Suspect]
     Indication: ASTHMA
     Route: 064
  2. AMINOPHYLLINE [Suspect]
     Indication: ASTHMA
     Route: 064
  3. ATROVENT [Suspect]
     Indication: ASTHMA
     Route: 064
  4. CLARITHROMYCIN [Suspect]
     Indication: ASTHMA
     Route: 064
  5. HYDROCORTISONE [Suspect]
     Indication: ASTHMA
     Route: 064
  6. MAGNESIUM SULFATE [Suspect]
     Indication: ASTHMA
     Route: 064
  7. SALBUTAMOL [Suspect]
     Indication: ASTHMA
     Dosage: 5 MG, Q4H

REACTIONS (3)
  - DRUG EXPOSURE DURING PREGNANCY [None]
  - FOETAL DISTRESS SYNDROME [None]
  - TACHYCARDIA FOETAL [None]
